FAERS Safety Report 9247608 (Version 1)
Quarter: 2013Q1

REPORT INFORMATION
  Report Type: Spontaneous
  Country: US (occurrence: None)
  Receive Date: 20130305
  Receipt Date: 20130305
  Transmission Date: 20140127
  Serious: Yes (Hospitalization)
  Sender: FDA-Public Use
  Company Number: 163-21880-12062293

PATIENT
  Age: 77 Year
  Sex: Male
  Weight: 137.89 kg

DRUGS (1)
  1. REVLIMID [Suspect]
     Indication: PLASMA CELL MYELOMA
     Dosage: 10MG, DAILY FOR 21 DAYS WITH 7 DAYS OFF, PO
     Dates: start: 20111028

REACTIONS (1)
  - Atrial fibrillation [None]
